FAERS Safety Report 5242945-9 (Version None)
Quarter: 2007Q1

REPORT INFORMATION
  Report Type: 
  Country: None (occurrence: None)
  Receive Date: 20070215
  Receipt Date: 20070209
  Transmission Date: 20070707
  Serious: Yes (Death)
  Sender: FDA-Public Use
  Company Number: 235792K06USA

PATIENT
  Age: 44 Year
  Sex: Female

DRUGS (5)
  1. REBIF [Suspect]
     Indication: MULTIPLE SCLEROSIS
     Dosage: 44 MCG, 3 IN 1 WEEKS, SUBCUTANEOUS
     Route: 058
     Dates: start: 20050715, end: 20051114
  2. CLONAZEPAM [Concomitant]
  3. PROVIGIL [Concomitant]
  4. TIZANIDINE HCL [Concomitant]
  5. AMANTADINE (AMANTADINE /00055901/) [Concomitant]

REACTIONS (2)
  - COMPLETED SUICIDE [None]
  - IRRITABILITY [None]
